FAERS Safety Report 19403828 (Version 1)
Quarter: 2021Q2

REPORT INFORMATION
  Report Type: Spontaneous
  Country: US (occurrence: US)
  Receive Date: 20210610
  Receipt Date: 20210610
  Transmission Date: 20210717
  Serious: Yes (Hospitalization)
  Sender: FDA-Public Use
  Company Number: None

PATIENT
  Sex: Female

DRUGS (30)
  1. BUPROPN [Concomitant]
  2. FIASP FLEX [Concomitant]
  3. HUMALOG [Concomitant]
     Active Substance: INSULIN LISPRO
  4. HYDROCO/APAP [Concomitant]
     Active Substance: ACETAMINOPHEN\HYDROCODONE
  5. LORAZEPAM. [Concomitant]
     Active Substance: LORAZEPAM
  6. NEO/POLY/DEX [Concomitant]
     Active Substance: DEXAMETHASONE\NEOMYCIN\POLYMYXIN B SULFATE
  7. ALLOPURINOL. [Concomitant]
     Active Substance: ALLOPURINOL
  8. VITAMIN D3 [Concomitant]
     Active Substance: CHOLECALCIFEROL
  9. PRAZOSIN. [Concomitant]
     Active Substance: PRAZOSIN
  10. PYRIDOSTIGMI [Concomitant]
  11. ABILIFY [Concomitant]
     Active Substance: ARIPIPRAZOLE
  12. ARIPRAZOLE [Concomitant]
     Active Substance: ARIPIPRAZOLE
  13. OMEPRAZOLE. [Concomitant]
     Active Substance: OMEPRAZOLE
  14. ATORVASTATIN [Concomitant]
     Active Substance: ATORVASTATIN
  15. METOCLOPRAM [Concomitant]
     Active Substance: METOCLOPRAMIDE
  16. DIMETHYL FUM [Suspect]
     Active Substance: DIMETHYL FUMARATE
     Indication: MULTIPLE SCLEROSIS
     Route: 048
     Dates: start: 20200707
  17. GABAPENTIN. [Concomitant]
     Active Substance: GABAPENTIN
  18. CITALOPRAM [Concomitant]
     Active Substance: CITALOPRAM HYDROBROMIDE
  19. LANTUS [Concomitant]
     Active Substance: INSULIN GLARGINE
  20. PREDNISONE. [Concomitant]
     Active Substance: PREDNISONE
  21. VIBERZI [Concomitant]
     Active Substance: ELUXADOLINE
  22. CARBEDILOL [Concomitant]
  23. DOXYCLY HCY [Concomitant]
  24. LAMOTRIGINE. [Concomitant]
     Active Substance: LAMOTRIGINE
  25. LEVOTHYROXINE. [Concomitant]
     Active Substance: LEVOTHYROXINE
  26. POT CITRATE [Concomitant]
     Active Substance: POTASSIUM CITRATE
  27. FUROSEMIDE. [Concomitant]
     Active Substance: FUROSEMIDE
  28. HYDROYXZ [Concomitant]
  29. NITROFURANTIN [Concomitant]
     Active Substance: NITROFURANTOIN
  30. QUIETIAPINE [Concomitant]
     Active Substance: QUETIAPINE

REACTIONS (1)
  - Myasthenia gravis [None]
